FAERS Safety Report 8142318-5 (Version None)
Quarter: 2012Q1

REPORT INFORMATION
  Report Type: 
  Country: None (occurrence: None)
  Receive Date: 20120216
  Receipt Date: 20120208
  Transmission Date: 20120608
  Serious: Yes (Other)
  Sender: FDA-Public Use
  Company Number: DE-ASTRAZENECA-2012SE05820

PATIENT
  Age: 26638 Day
  Sex: Female
  Weight: 65 kg

DRUGS (4)
  1. ATACAND [Suspect]
     Indication: HYPERTENSION
     Route: 048
     Dates: start: 20120107, end: 20120110
  2. BISOPROLOL FUMARATE [Concomitant]
     Route: 048
  3. L-THYROX ZS [Concomitant]
     Dosage: DAILY
     Route: 048
  4. HYDROCHLOROTHIAZIDE [Concomitant]
     Route: 048

REACTIONS (3)
  - HYPERTENSIVE CRISIS [None]
  - BLOOD PRESSURE INCREASED [None]
  - DRUG INEFFECTIVE [None]
